FAERS Safety Report 6041764-3 (Version None)
Quarter: 2009Q1

REPORT INFORMATION
  Report Type: 
  Country: None (occurrence: None)
  Receive Date: 20090116
  Receipt Date: 20090105
  Transmission Date: 20090719
  Serious: Yes (Life-Threatening, Hospitalization)
  Sender: FDA-Public Use
  Company Number: FR-PFIZER INC-2009152246

PATIENT

DRUGS (3)
  1. FLUCONAZOLE [Suspect]
     Indication: PERITONITIS
     Dosage: 400 MG, 2X/DAY
     Route: 042
     Dates: start: 20081102, end: 20081104
  2. CIPROFLOXACIN HYDROCHLORIDE [Concomitant]
     Route: 042
     Dates: start: 20081102
  3. TAZOCILLINE [Concomitant]
     Route: 042
     Dates: start: 20081102

REACTIONS (1)
  - PANCYTOPENIA [None]
